FAERS Safety Report 6839533-7 (Version None)
Quarter: 2010Q3

REPORT INFORMATION
  Report Type: 
  Country: None (occurrence: None)
  Receive Date: 20100714
  Receipt Date: 20091211
  Transmission Date: 20110219
  Serious: No
  Sender: FDA-Public Use
  Company Number: A0834795A

PATIENT
  Age: 72 Year
  Sex: Female

DRUGS (4)
  1. FLOVENT [Suspect]
     Indication: PRODUCT USED FOR UNKNOWN INDICATION
     Dosage: 2PUFF TWICE PER DAY
     Route: 055
     Dates: start: 20091206
  2. THYROID REPLACEMENT [Concomitant]
  3. GLYBURIDE [Concomitant]
  4. LEVEMIR [Concomitant]

REACTIONS (1)
  - EYE IRRITATION [None]
